FAERS Safety Report 7463707-8 (Version None)
Quarter: 2011Q2

REPORT INFORMATION
  Report Type: 
  Country: None (occurrence: None)
  Receive Date: 20110506
  Receipt Date: 20110502
  Transmission Date: 20111010
  Serious: Yes (Death)
  Sender: FDA-Public Use
  Company Number: IL-SANOFI-AVENTIS-2011SA027226

PATIENT
  Age: 90 Year
  Sex: Male

DRUGS (7)
  1. PLAVIX [Suspect]
     Route: 048
     Dates: start: 20040101
  2. ORGANIC NITRATES [Concomitant]
  3. PLAVIX [Suspect]
     Route: 048
     Dates: start: 20040101
  4. TICLOPIDINE HCL [Concomitant]
  5. ALL OTHER THERAPEUTIC PRODUCTS [Concomitant]
  6. COUMADIN [Concomitant]
  7. BETA BLOCKING AGENTS [Concomitant]

REACTIONS (2)
  - MYELODYSPLASTIC SYNDROME [None]
  - ACUTE MYELOID LEUKAEMIA [None]
